FAERS Safety Report 26039990 (Version 1)
Quarter: 2025Q4

REPORT INFORMATION
  Report Type: Report from Study
  Country: RU (occurrence: RU)
  Receive Date: 20251113
  Receipt Date: 20251113
  Transmission Date: 20260118
  Serious: No
  Sender: MIRUM PHARMACEUTICALS
  Company Number: RU-MIRUM PHARMACEUTICALS, INC.-RU-MIR-25-00825

PATIENT

DRUGS (4)
  1. LIVMARLI [Suspect]
     Active Substance: MARALIXIBAT CHLORIDE
     Indication: Alagille syndrome
     Dosage: 0.38 MILLIGRAM/KILOGRAM, QD
     Route: 048
  2. LIVMARLI [Suspect]
     Active Substance: MARALIXIBAT CHLORIDE
     Dosage: 0.38 MILLIGRAM/KILOGRAM, BID
     Route: 048
  3. URSODIOL [Concomitant]
     Active Substance: URSODIOL
     Indication: Product used for unknown indication
     Dosage: UNK
     Route: 065
  4. VITAMINS NOS [Concomitant]
     Active Substance: VITAMINS
     Indication: Product used for unknown indication
     Route: 065

REACTIONS (4)
  - Bile acids increased [Unknown]
  - Pruritus [Recovering/Resolving]
  - Drug ineffective [Unknown]
  - Prescribed overdose [Unknown]
